FAERS Safety Report 9869895 (Version 1)
Quarter: 2014Q1

REPORT INFORMATION
  Report Type: Spontaneous
  Country: ES (occurrence: ES)
  Receive Date: 20140205
  Receipt Date: 20140205
  Transmission Date: 20141002
  Serious: Yes (Life-Threatening)
  Sender: FDA-Public Use
  Company Number: ES-BAYER-2014-017203

PATIENT
  Age: 72 Year
  Sex: Female

DRUGS (6)
  1. ADIRO 100 [Suspect]
     Dosage: 100 MG, QD
     Route: 048
     Dates: start: 20140115
  2. LEVETIRACETAM [Interacting]
     Indication: PETIT MAL EPILEPSY
     Dosage: 500 MG, QD
     Route: 048
     Dates: start: 20140117, end: 20140121
  3. AMOXICILLIN W/CLAVULANIC ACID [Interacting]
     Indication: PNEUMONIA BACTERIAL
     Dosage: 1 DF, TID
     Route: 042
     Dates: start: 20140115
  4. TRAMADOL [Interacting]
     Indication: ANALGESIC THERAPY
     Dosage: 50 MG, BID
     Route: 048
     Dates: start: 20140114
  5. LYRICA [Interacting]
     Indication: NEURALGIA
     Dosage: 75 MG, BID
     Route: 048
  6. SINERGINA [Interacting]
     Dosage: 100 MG, TID
     Route: 048

REACTIONS (1)
  - Pancytopenia [Recovering/Resolving]
